FAERS Safety Report 8497808 (Version 5)
Quarter: 2012Q4

REPORT INFORMATION
  Report Type: 
  Country: BR (occurrence: BR)
  Receive Date: 20120406
  Receipt Date: 20120910
  Transmission Date: 20130627
  Serious: Yes (Death, Other)
  Sender: FDA-Public Use
  Company Number: BR-PFIZER INC-2012076240

PATIENT
  Age: 46 Year
  Sex: Female
  Weight: 78 kg

DRUGS (4)
  1. SUTENT [Suspect]
     Indication: RENAL CELL CARCINOMA
     Dosage: 50 mg, 1x/day (cycle four per two)
     Route: 048
     Dates: start: 20120316
  2. HIGROTON [Concomitant]
     Dosage: 1 DF (25 mg tablet), daily
  3. LOSARTAN [Concomitant]
     Dosage: 1 DF, daily
  4. SELOKEN [Concomitant]
     Dosage: 0.5 DF, daily

REACTIONS (32)
  - Death [Fatal]
  - Anal haemorrhage [Unknown]
  - Decreased appetite [Not Recovered/Not Resolved]
  - Dysgeusia [Not Recovered/Not Resolved]
  - Back pain [Not Recovered/Not Resolved]
  - Disease progression [Unknown]
  - Renal cancer [Unknown]
  - Nocturia [Not Recovered/Not Resolved]
  - Pain [Unknown]
  - Stomatitis [Not Recovered/Not Resolved]
  - Eating disorder [Not Recovered/Not Resolved]
  - Hunger [Not Recovered/Not Resolved]
  - Genital burning sensation [Unknown]
  - Pain in extremity [Recovering/Resolving]
  - Oedema peripheral [Recovering/Resolving]
  - Hypertension [Unknown]
  - Skin burning sensation [Not Recovered/Not Resolved]
  - Gait disturbance [Not Recovered/Not Resolved]
  - Discomfort [Not Recovered/Not Resolved]
  - Aphthous stomatitis [Recovering/Resolving]
  - Abnormal faeces [Unknown]
  - Anal prolapse [Unknown]
  - Emotional disorder [Unknown]
  - Crying [Unknown]
  - Haemorrhoids [Not Recovered/Not Resolved]
  - Breast pain [Unknown]
  - Neck pain [Unknown]
  - Pain in extremity [Unknown]
  - Swelling [Unknown]
  - Walking disability [Unknown]
  - Malaise [Unknown]
  - Confusional state [Unknown]
